FAERS Safety Report 18077499 (Version 3)
Quarter: 2021Q2

REPORT INFORMATION
  Report Type: Spontaneous
  Country: US (occurrence: US)
  Receive Date: 20200728
  Receipt Date: 20210414
  Transmission Date: 20210717
  Serious: Yes (Other)
  Sender: FDA-Public Use
  Company Number: US-BLUEPRINT MEDICINES CORPORATION-SP-US-2020-000828

PATIENT
  Age: 67 Year
  Sex: Female
  Weight: 65 kg

DRUGS (17)
  1. AYVAKIT [Suspect]
     Active Substance: AVAPRITINIB
     Dosage: TAKE 1 TABLET (300MG) BY MOUTH FOR TWO DAYS THEN OFF FOR ONE DAY AND CONTINUE CYCLE NO BREAK
     Route: 048
     Dates: start: 20200620
  2. AYVAKIT [Suspect]
     Active Substance: AVAPRITINIB
     Dosage: 300 MG FOR 2 DAYS/ ONE DAY OFF
     Route: 048
     Dates: start: 20200914
  3. AMLODIPINE [Concomitant]
     Active Substance: AMLODIPINE BESYLATE
     Indication: PRODUCT USED FOR UNKNOWN INDICATION
     Route: 048
  4. DIPHENHYDRAMINE. [Concomitant]
     Active Substance: DIPHENHYDRAMINE
     Indication: PRODUCT USED FOR UNKNOWN INDICATION
     Dosage: 1 CAP 1 HOUR PRIOR TO SCAN
     Route: 048
  5. FUROSEMIDE. [Concomitant]
     Active Substance: FUROSEMIDE
     Indication: PRODUCT USED FOR UNKNOWN INDICATION
     Route: 048
  6. IBUPROFEN. [Concomitant]
     Active Substance: IBUPROFEN
     Indication: PRODUCT USED FOR UNKNOWN INDICATION
     Route: 048
  7. AYVAKIT [Suspect]
     Active Substance: AVAPRITINIB
     Indication: GASTROINTESTINAL STROMAL TUMOUR
     Route: 048
     Dates: start: 20200626, end: 20200707
  8. AYVAKIT [Suspect]
     Active Substance: AVAPRITINIB
     Dosage: INCREASE TO 300 MG FOR 2 DAYS WITH 1 DAY OFF (AVERAGE 200 MG/ DAY)
     Route: 048
     Dates: start: 20200806, end: 20200910
  9. FOLIC ACID. [Concomitant]
     Active Substance: FOLIC ACID
     Indication: PRODUCT USED FOR UNKNOWN INDICATION
     Route: 048
  10. ONDANSETRON [Concomitant]
     Active Substance: ONDANSETRON
     Indication: NAUSEA
     Route: 048
  11. FERROUS SULFATE. [Concomitant]
     Active Substance: FERROUS SULFATE
     Indication: PRODUCT USED FOR UNKNOWN INDICATION
     Dosage: TAKE 1 TABLET BY MOUTH EVERY OTHER DAY WITH VITAMIN C
     Route: 048
  12. FUROSEMIDE. [Concomitant]
     Active Substance: FUROSEMIDE
     Route: 048
  13. CLOBETASOL [Concomitant]
     Active Substance: CLOBETASOL
     Indication: PRODUCT USED FOR UNKNOWN INDICATION
     Route: 065
  14. AYVAKIT [Suspect]
     Active Substance: AVAPRITINIB
     Route: 048
     Dates: start: 20200716, end: 20200805
  15. POTASSIUM CHLORIDE. [Concomitant]
     Active Substance: POTASSIUM CHLORIDE
     Indication: PRODUCT USED FOR UNKNOWN INDICATION
     Dosage: TAKE 4 CAPSULES BY MOUTH DAILY. TAPERING DOWN CURRENTLY TAKING A TOTAL OF 7 DAILY
     Route: 048
  16. OMEPRAZOLE. [Concomitant]
     Active Substance: OMEPRAZOLE
     Indication: PRODUCT USED FOR UNKNOWN INDICATION
     Route: 048
  17. PREDNISONE. [Concomitant]
     Active Substance: PREDNISONE
     Indication: PRODUCT USED FOR UNKNOWN INDICATION
     Dosage: 50 MG ORALLY 13 HOURS, 7 HOURS AND 30 MINUTES BEFORE SCAN
     Route: 048

REACTIONS (18)
  - Skin ulcer [Unknown]
  - Hordeolum [Unknown]
  - Hypokalaemia [Unknown]
  - Blood blister [Not Recovered/Not Resolved]
  - Periorbital oedema [Unknown]
  - Pain in extremity [Unknown]
  - Oedema peripheral [Unknown]
  - Acne [Unknown]
  - Hypersomnia [Unknown]
  - Rash [Not Recovered/Not Resolved]
  - Petechiae [Unknown]
  - Oral herpes [Unknown]
  - Weight increased [Unknown]
  - Transaminases increased [Unknown]
  - Erythema [Unknown]
  - Fatigue [Unknown]
  - Off label use [Not Recovered/Not Resolved]
  - Decreased appetite [Unknown]

NARRATIVE: CASE EVENT DATE: 20200708
